FAERS Safety Report 5774738-8 (Version None)
Quarter: 2008Q2

REPORT INFORMATION
  Report Type: 
  Country: None (occurrence: None)
  Receive Date: 20080617
  Receipt Date: 20080609
  Transmission Date: 20081010
  Serious: Yes (Hospitalization)
  Sender: FDA-Public Use
  Company Number: DE-TEVA-172657ISR

PATIENT
  Age: 48 Year
  Sex: Female

DRUGS (5)
  1. METHOTREXATE [Suspect]
  2. CHLOROQUINE PHOSPHATE [Suspect]
  3. CORTICOIDS [Suspect]
  4. LEFLUNOMIDE [Suspect]
  5. SULFASALAZINE [Suspect]

REACTIONS (1)
  - TUBERCULOUS TENOSYNOVITIS [None]
